FAERS Safety Report 7087285-0 (Version None)
Quarter: 2010Q4

REPORT INFORMATION
  Report Type: 
  Country: None (occurrence: None)
  Receive Date: 20101107
  Receipt Date: 20090814
  Transmission Date: 20110411
  Serious: Yes (Hospitalization)
  Sender: FDA-Public Use
  Company Number: PHHY2009US66929

PATIENT

DRUGS (1)
  1. EXJADE [Suspect]
     Dosage: UNK
     Route: 048

REACTIONS (1)
  - SYSTEMIC SCLEROSIS [None]
